FAERS Safety Report 8197192 (Version 5)
Quarter: 2013Q1

REPORT INFORMATION
  Report Type: Report from Study
  Country: KR (occurrence: KR)
  Receive Date: 20111024
  Receipt Date: 20130308
  Transmission Date: 20140127
  Serious: Yes (Death)
  Sender: FDA-Public Use
  Company Number: KR-ABBOTT-11P-090-0865705-00

PATIENT
  Age: 59 Year
  Sex: Male
  Weight: 60 kg

DRUGS (4)
  1. AZT [Concomitant]
     Indication: ANTIRETROVIRAL THERAPY
     Dosage: DAILY DOSE: 600MG
     Dates: start: 20110125, end: 20111121
  2. 3TC [Concomitant]
     Indication: ANTIRETROVIRAL THERAPY
     Dosage: DAILY DOSE: 300MG
     Dates: start: 20110125, end: 20111121
  3. VALCYTE [Concomitant]
     Indication: CYTOMEGALOVIRUS INFECTION
     Dosage: DAILY DOSE: 900MG
     Route: 048
     Dates: start: 20110129, end: 20110224
  4. KALETRA TABLETS [Suspect]
     Indication: HIV INFECTION
     Route: 048
     Dates: start: 20110125, end: 20111121

REACTIONS (4)
  - Pneumonia [Fatal]
  - Lung neoplasm malignant [Fatal]
  - Decreased appetite [Fatal]
  - Septic shock [Fatal]
